FAERS Safety Report 21315566 (Version 2)
Quarter: 2022Q3

REPORT INFORMATION
  Report Type: Report from Study
  Country: DE (occurrence: DE)
  Receive Date: 20220909
  Receipt Date: 20220919
  Transmission Date: 20221027
  Serious: Yes (Hospitalization)
  Sender: FDA-Public Use
  Company Number: DE-SERVIER-S22008778

PATIENT
  Age: 78 Year
  Sex: Female

DRUGS (2)
  1. LONSURF [Suspect]
     Active Substance: TIPIRACIL HYDROCHLORIDE\TRIFLURIDINE
     Indication: Cholangiocarcinoma
     Dosage: 40 MG, BID, ON DAYS 1-5 FOLLOWED BY A 9-DAYS RECOVERY PERIOD OF EACH 14-DAYS TREATMENT CYCLE
     Route: 048
     Dates: start: 20220816, end: 20220820
  2. IRINOTECAN [Suspect]
     Active Substance: IRINOTECAN
     Indication: Cholangiocarcinoma
     Dosage: 179.99 MG, UNKNOWN
     Route: 042
     Dates: start: 20220816, end: 20220816

REACTIONS (1)
  - Condition aggravated [Recovered/Resolved]

NARRATIVE: CASE EVENT DATE: 20220824
